FAERS Safety Report 5073937-0 (Version None)
Quarter: 2006Q3

REPORT INFORMATION
  Report Type: 
  Country: None (occurrence: None)
  Receive Date: 20060808
  Receipt Date: 20060727
  Transmission Date: 20061208
  Serious: Yes (Other)
  Sender: FDA-Public Use
  Company Number: PHEH2006US09678

PATIENT
  Age: 57 Year
  Sex: Male

DRUGS (4)
  1. AVASTIN [Suspect]
     Dates: start: 20040922, end: 20050912
  2. ANZEMET [Concomitant]
     Dosage: 100 MG, UNK
     Dates: start: 20040426, end: 20040618
  3. INTRON A [Concomitant]
     Dosage: 12-18 MIN
     Dates: start: 20040503, end: 20040901
  4. AREDIA [Suspect]
     Dosage: 90 MG, QMO
     Dates: start: 20040426, end: 20050603

REACTIONS (10)
  - ARTHRALGIA [None]
  - BONE DISORDER [None]
  - DYSPHAGIA [None]
  - DYSPNOEA [None]
  - INSOMNIA [None]
  - NASAL CONGESTION [None]
  - NIGHT SWEATS [None]
  - OSTEONECROSIS [None]
  - PAIN IN JAW [None]
  - SNORING [None]
